FAERS Safety Report 25945572 (Version 2)
Quarter: 2025Q4

REPORT INFORMATION
  Report Type: Spontaneous
  Country: TR (occurrence: TR)
  Receive Date: 20251021
  Receipt Date: 20251223
  Transmission Date: 20260118
  Serious: Yes (Life-Threatening)
  Sender: PFIZER
  Company Number: TR-PFIZER INC-PV202500123270

PATIENT
  Age: 38 Year
  Sex: Female
  Weight: 88 kg

DRUGS (3)
  1. IXIFI [Suspect]
     Active Substance: INFLIXIMAB-QBTX
     Indication: Psoriatic arthropathy
     Dosage: 500 MG, CYCLIC
     Route: 042
     Dates: start: 20250814, end: 20250814
  2. DELTACORTRIL [Concomitant]
     Active Substance: PREDNISOLONE
     Indication: Psoriatic arthropathy
     Dosage: UNK, 1X/DAY
  3. ACEMETACIN [Concomitant]
     Active Substance: ACEMETACIN
     Indication: Psoriatic arthropathy
     Dosage: UNK, 2X/DAY

REACTIONS (5)
  - Drug hypersensitivity [Recovered/Resolved]
  - Eye irritation [Recovered/Resolved]
  - Feeling hot [Recovered/Resolved]
  - Erythema [Recovered/Resolved]
  - Nausea [Recovered/Resolved]

NARRATIVE: CASE EVENT DATE: 20250814
